FAERS Safety Report 7110804-2 (Version None)
Quarter: 2010Q4

REPORT INFORMATION
  Report Type: 
  Country: None (occurrence: None)
  Receive Date: 20101116
  Receipt Date: 20101116
  Transmission Date: 20110411
  Serious: Yes (Other)
  Sender: FDA-Public Use
  Company Number: None

PATIENT
  Age: 46 Year
  Sex: Female
  Weight: 76.6579 kg

DRUGS (2)
  1. OXYCONTIN [Suspect]
     Indication: COMPLEX REGIONAL PAIN SYNDROME
     Dosage: 80MG TABLETS 3 PER DAY PO
     Route: 048
     Dates: start: 20020311, end: 20101115
  2. OXYCONTIN [Suspect]
     Indication: MULTIPLE FRACTURES
     Dosage: 80MG TABLETS 3 PER DAY PO
     Route: 048
     Dates: start: 20020311, end: 20101115

REACTIONS (5)
  - ABDOMINAL PAIN UPPER [None]
  - DRUG EFFECT DECREASED [None]
  - PRODUCT SUBSTITUTION ISSUE [None]
  - TREMOR [None]
  - VOMITING [None]
